FAERS Safety Report 9163312 (Version 2)
Quarter: 2013Q2

REPORT INFORMATION
  Report Type: Spontaneous
  Country: DE (occurrence: DE)
  Receive Date: 20130314
  Receipt Date: 20130404
  Transmission Date: 20140414
  Serious: Yes (Hospitalization)
  Sender: FDA-Public Use
  Company Number: DE-ROCHE-1201924

PATIENT
  Age: 69 Year
  Sex: Female

DRUGS (12)
  1. NEULASTA [Suspect]
     Indication: DIFFUSE LARGE B-CELL LYMPHOMA
     Route: 058
     Dates: start: 20121016, end: 20121016
  2. RITUXIMAB [Suspect]
     Indication: B-CELL LYMPHOMA
     Route: 042
     Dates: start: 20121102, end: 20121102
  3. CYCLOPHOSPHAMIDE [Suspect]
     Indication: B-CELL LYMPHOMA
     Route: 042
     Dates: start: 20121013, end: 20121013
  4. DOXORUBICINE [Suspect]
     Indication: B-CELL LYMPHOMA
     Route: 042
     Dates: start: 20121013, end: 20121013
  5. PREDNISOLONE [Suspect]
     Indication: B-CELL LYMPHOMA
     Route: 048
     Dates: start: 20121013, end: 20121017
  6. VINCRISTINE [Suspect]
     Indication: B-CELL LYMPHOMA
     Route: 042
     Dates: start: 20120915, end: 20120915
  7. METHOTREXAT [Concomitant]
     Route: 065
     Dates: start: 20120714, end: 20120714
  8. LEUCOVORIN [Concomitant]
     Route: 065
     Dates: start: 20120715, end: 20120716
  9. PREGABALIN [Concomitant]
     Route: 065
     Dates: start: 20120918
  10. DIGITOXIN [Concomitant]
     Route: 065
     Dates: start: 20121119
  11. KALIUMCHLORIDEDRANK [Concomitant]
     Route: 065
     Dates: start: 20121115
  12. ENOXAPARIN SODIUM [Concomitant]
     Route: 065
     Dates: start: 20120615

REACTIONS (1)
  - Gamma-glutamyltransferase increased [Unknown]
